FAERS Safety Report 9713286 (Version 1)
Quarter: 2013Q4

REPORT INFORMATION
  Report Type: Spontaneous
  Country: US (occurrence: US)
  Receive Date: 20131126
  Receipt Date: 20131126
  Transmission Date: 20140711
  Serious: Yes (Death, Hospitalization)
  Sender: FDA-Public Use
  Company Number: US-ROXANE LABORATORIES, INC.-2013-RO-01868RO

PATIENT
  Age: 78 Year
  Sex: Male

DRUGS (1)
  1. METHOTREXATE [Suspect]
     Indication: CHEMOTHERAPY

REACTIONS (13)
  - Death [Fatal]
  - Renal failure acute [Recovered/Resolved]
  - Drug clearance decreased [Recovered/Resolved]
  - Delirium [Unknown]
  - Haematoma [Unknown]
  - Haematuria [Unknown]
  - Depression [Unknown]
  - Pelvic abscess [Unknown]
  - Urinary tract infection [Unknown]
  - Atrial fibrillation [Unknown]
  - Fluid overload [Unknown]
  - Upper gastrointestinal haemorrhage [Unknown]
  - Osteosarcoma recurrent [Unknown]
